FAERS Safety Report 14695878 (Version 1)
Quarter: 2018Q1

REPORT INFORMATION
  Report Type: Spontaneous
  Country: US (occurrence: US)
  Receive Date: 20180329
  Receipt Date: 20180329
  Transmission Date: 20180509
  Serious: Yes (Disabling)
  Sender: FDA-Public Use
  Company Number: None

PATIENT
  Age: 26 Year
  Sex: Female
  Weight: 54 kg

DRUGS (2)
  1. PROAIR HFA [Concomitant]
     Active Substance: ALBUTEROL SULFATE
  2. CLOBETASOL PROPIONATE. [Suspect]
     Active Substance: CLOBETASOL PROPIONATE
     Indication: DERMATITIS ATOPIC
     Route: 061

REACTIONS (14)
  - Pain [None]
  - Skin tightness [None]
  - Discomfort [None]
  - Wound secretion [None]
  - Dry skin [None]
  - Insomnia [None]
  - Skin hypertrophy [None]
  - Drug ineffective [None]
  - Condition aggravated [None]
  - Body temperature abnormal [None]
  - Chills [None]
  - Skin exfoliation [None]
  - Erythema [None]
  - Impaired work ability [None]

NARRATIVE: CASE EVENT DATE: 20140609
